FAERS Safety Report 5407662-0 (Version None)
Quarter: 2007Q3

REPORT INFORMATION
  Report Type: 
  Country: None (occurrence: None)
  Receive Date: 20070807
  Receipt Date: 20070727
  Transmission Date: 20080115
  Serious: Yes (Other)
  Sender: FDA-Public Use
  Company Number: FR-PFIZER INC-2007057545

PATIENT
  Sex: Female
  Weight: 85 kg

DRUGS (6)
  1. RELPAX [Suspect]
     Indication: MIGRAINE
     Route: 048
  2. ANALGESICS [Suspect]
  3. ALL OTHER THERAPEUTIC PRODUCTS [Concomitant]
  4. LAMALINE [Concomitant]
     Route: 048
  5. PROPOFOL [Concomitant]
     Route: 048
     Dates: start: 20050503
  6. NARAMIG [Concomitant]
     Route: 048
     Dates: start: 20050830, end: 20051003

REACTIONS (3)
  - HEADACHE [None]
  - MEDICATION ERROR [None]
  - OVERDOSE [None]
